FAERS Safety Report 6529945-3 (Version None)
Quarter: 2010Q1

REPORT INFORMATION
  Report Type: 
  Country: None (occurrence: None)
  Receive Date: 20100107
  Receipt Date: 20091228
  Transmission Date: 20100710
  Serious: Yes (Other)
  Sender: FDA-Public Use
  Company Number: US-BRISTOL-MYERS SQUIBB COMPANY-14922751

PATIENT
  Age: 16 Year
  Sex: Male

DRUGS (7)
  1. CYCLOPHOSPHAMIDE [Suspect]
     Indication: RHABDOMYOSARCOMA
  2. HYDROCORTISONE [Suspect]
     Indication: RHABDOMYOSARCOMA
     Dosage: 30MG/M2 TIMES 3
     Route: 037
  3. METHOTREXATE [Suspect]
     Indication: RHABDOMYOSARCOMA
     Dosage: 15MG/M2 TIMES 3
     Route: 037
  4. CYTOSINE ARABINOSIDE [Suspect]
     Indication: RHABDOMYOSARCOMA
     Route: 037
  5. VINCRISTINE [Suspect]
     Indication: RHABDOMYOSARCOMA
  6. ACTINOMYCIN D [Suspect]
     Indication: RHABDOMYOSARCOMA
  7. RADIATION THERAPY [Suspect]
     Indication: RHABDOMYOSARCOMA

REACTIONS (1)
  - MYELITIS TRANSVERSE [None]
